FAERS Safety Report 9410727 (Version 1)
Quarter: 2013Q3

REPORT INFORMATION
  Report Type: Spontaneous
  Country: FR (occurrence: FR)
  Receive Date: 20130719
  Receipt Date: 20130719
  Transmission Date: 20140515
  Serious: Yes (Hospitalization)
  Sender: FDA-Public Use
  Company Number: FR-B.I. PHARMACEUTICALS,INC./RIDGEFIELD-2013-FF-01889FF

PATIENT
  Age: 52 Year
  Sex: Female

DRUGS (2)
  1. PRADAXA [Suspect]
     Route: 048
     Dates: start: 20130517, end: 20130518
  2. XARELTO [Suspect]
     Indication: ARRHYTHMIA
     Dosage: 10 MG
     Dates: start: 20130426, end: 20130513

REACTIONS (2)
  - Vertigo [Recovered/Resolved]
  - Balance disorder [Recovered/Resolved]
